FAERS Safety Report 14607669 (Version 7)
Quarter: 2019Q4

REPORT INFORMATION
  Report Type: Report from Study
  Country: CA (occurrence: CA)
  Receive Date: 20180307
  Receipt Date: 20191017
  Transmission Date: 20200122
  Serious: Yes (Hospitalization)
  Sender: FDA-Public Use
  Company Number: CA-GLAXOSMITHKLINE-CA2018GSK036344

PATIENT
  Sex: Female

DRUGS (8)
  1. ALVESCO [Suspect]
     Active Substance: CICLESONIDE
     Indication: PRODUCT USED FOR UNKNOWN INDICATION
     Dosage: 2 PUFF(S), BID
     Route: 055
  2. SPIRIVA [Suspect]
     Active Substance: TIOTROPIUM BROMIDE MONOHYDRATE
     Indication: PRODUCT USED FOR UNKNOWN INDICATION
     Dosage: 2 PUFF(S), QD
     Route: 055
  3. NUCALA [Suspect]
     Active Substance: MEPOLIZUMAB
     Indication: ASTHMA
     Dosage: 100 MG, Z
     Route: 042
     Dates: start: 20180322
  4. PREDNISONE. [Suspect]
     Active Substance: PREDNISONE
     Indication: PRODUCT USED FOR UNKNOWN INDICATION
     Dosage: UNK
     Route: 048
  5. ZENHALE [Suspect]
     Active Substance: FORMOTEROL FUMARATE\MOMETASONE FUROATE
     Indication: PRODUCT USED FOR UNKNOWN INDICATION
     Dosage: 2 PUFF(S), BID
     Route: 055
  6. SINGULAIR [Suspect]
     Active Substance: MONTELUKAST SODIUM
     Indication: PRODUCT USED FOR UNKNOWN INDICATION
     Dosage: UNK UNK, QD
  7. NUCALA [Suspect]
     Active Substance: MEPOLIZUMAB
     Dosage: 100 MG, Z
     Route: 042
  8. SALBUTAMOL SULPHATE [Suspect]
     Active Substance: ALBUTEROL SULFATE
     Indication: ASTHMA
     Dosage: UNK

REACTIONS (10)
  - Wheezing [Unknown]
  - Obesity [Unknown]
  - Adverse drug reaction [Unknown]
  - Sleep disorder due to a general medical condition [Unknown]
  - Weight decreased [Unknown]
  - Decreased activity [Unknown]
  - Asthma [Unknown]
  - General physical health deterioration [Recovering/Resolving]
  - Impaired quality of life [Unknown]
  - Dyspnoea [Unknown]

NARRATIVE: CASE EVENT DATE: 2017
